FAERS Safety Report 6824474-1 (Version None)
Quarter: 2010Q3

REPORT INFORMATION
  Report Type: 
  Country: None (occurrence: None)
  Receive Date: 20100708
  Receipt Date: 20061031
  Transmission Date: 20110219
  Serious: No
  Sender: FDA-Public Use
  Company Number: US-PFIZER INC-2006133870

PATIENT
  Sex: Male
  Weight: 86.18 kg

DRUGS (4)
  1. CHANTIX [Suspect]
     Indication: SMOKING CESSATION THERAPY
     Route: 048
     Dates: start: 20060901
  2. LIPITOR [Concomitant]
     Route: 048
  3. PREVACID [Concomitant]
     Route: 048
  4. LORAZEPAM [Concomitant]
     Route: 048

REACTIONS (1)
  - DIZZINESS [None]
